FAERS Safety Report 5742143-6 (Version None)
Quarter: 2008Q2

REPORT INFORMATION
  Report Type: 
  Country: None (occurrence: None)
  Receive Date: 20080519
  Receipt Date: 20080516
  Transmission Date: 20081010
  Serious: Yes (Hospitalization)
  Sender: FDA-Public Use
  Company Number: JP-BRISTOL-MYERS SQUIBB COMPANY-14182018

PATIENT
  Age: 62 Year
  Sex: Female

DRUGS (4)
  1. TAXOL [Suspect]
     Indication: BREAST CANCER
     Dosage: STARTED ON: 19-FEB-2008,3RD COURSE STARTED ON 18-APR-08 AND ON25-APR-2008 SKIPPED DAY 8 COURSE
     Route: 042
     Dates: start: 20080219, end: 20080512
  2. AVASTIN [Suspect]
     Indication: BREAST CANCER
     Dosage: STARTED ON: 19-FEB-2008(DAY 1 ,1ST COURSE)
     Route: 042
     Dates: start: 20080219, end: 20080512
  3. LOXOPROFEN SODIUM [Concomitant]
  4. REBAMIPIDE [Concomitant]

REACTIONS (1)
  - UPPER GASTROINTESTINAL HAEMORRHAGE [None]
